FAERS Safety Report 9409992 (Version 2)
Quarter: 2013Q3

REPORT INFORMATION
  Report Type: Spontaneous
  Country: US (occurrence: US)
  Receive Date: 20130719
  Receipt Date: 20130813
  Transmission Date: 20140515
  Serious: Yes (Hospitalization, Other)
  Sender: FDA-Public Use
  Company Number: US-PFIZER INC-2013212156

PATIENT
  Age: 52 Year
  Sex: Female
  Weight: 80.27 kg

DRUGS (1)
  1. LYRICA [Suspect]
     Indication: FIBROMYALGIA
     Dosage: UNK

REACTIONS (4)
  - Myocardial infarction [Unknown]
  - Swelling [Recovered/Resolved]
  - Weight increased [Unknown]
  - Apparent death [Unknown]
